FAERS Safety Report 7119460-0 (Version None)
Quarter: 2010Q4

REPORT INFORMATION
  Report Type: 
  Country: None (occurrence: None)
  Receive Date: 20101123
  Receipt Date: 20101116
  Transmission Date: 20110411
  Serious: Yes (Hospitalization, Other)
  Sender: FDA-Public Use
  Company Number: JP-PFIZER INC-2010149873

PATIENT
  Age: 53 Year
  Sex: Female

DRUGS (7)
  1. LYRICA [Suspect]
     Dosage: 150 UNK, UNK
     Route: 048
     Dates: start: 20101112, end: 20101115
  2. PREDNISOLONE [Concomitant]
  3. ALLELOCK [Concomitant]
  4. GASTER [Concomitant]
     Route: 048
  5. URSO 250 [Concomitant]
  6. MUCODYNE [Concomitant]
     Route: 048
  7. DIFLUCAN [Concomitant]
     Route: 048

REACTIONS (1)
  - PULMONARY OEDEMA [None]
